FAERS Safety Report 10182081 (Version 1)
Quarter: 2014Q2

REPORT INFORMATION
  Report Type: Spontaneous
  Country: TR (occurrence: TR)
  Receive Date: 20140520
  Receipt Date: 20140520
  Transmission Date: 20141212
  Serious: Yes (Other)
  Sender: FDA-Public Use
  Company Number: PHHY2014TR058192

PATIENT
  Age: 68 Year
  Sex: Female

DRUGS (1)
  1. ENOXAPARIN SODIUM [Suspect]
     Indication: THROMBOSIS PROPHYLAXIS
     Dosage: 40 MG/0.4ML
     Route: 058

REACTIONS (9)
  - Arterial occlusive disease [Unknown]
  - Embolism [Recovered/Resolved]
  - Cerebrovascular accident [Unknown]
  - Depressed level of consciousness [Unknown]
  - Dysarthria [Unknown]
  - Disorientation [Unknown]
  - Dermatitis bullous [Recovering/Resolving]
  - Skin necrosis [Recovering/Resolving]
  - Heparin-induced thrombocytopenia [Recovering/Resolving]
